FAERS Safety Report 23274039 (Version 1)
Quarter: 2023Q4

REPORT INFORMATION
  Report Type: Other
  Country: JP (occurrence: JP)
  Receive Date: 20231208
  Receipt Date: 20231208
  Transmission Date: 20240110
  Serious: No
  Sender: FDA-Public Use
  Company Number: JP-WW-2023-09285

PATIENT
  Age: 9 Decade
  Sex: Female

DRUGS (5)
  1. LUNESTA [Suspect]
     Active Substance: ESZOPICLONE
     Indication: Insomnia
     Route: 048
  2. METOCLOPRAMIDE [Concomitant]
     Active Substance: METOCLOPRAMIDE
     Route: 048
  3. DULOXETINE [Concomitant]
     Active Substance: DULOXETINE
     Route: 048
  4. CLOTIAZEPAM [Concomitant]
     Active Substance: CLOTIAZEPAM
     Route: 048
  5. MOSAPRIDE CITRATE DIHYDRATE [Concomitant]
     Active Substance: MOSAPRIDE CITRATE DIHYDRATE
     Route: 048

REACTIONS (2)
  - Somnolence [Recovered/Resolved]
  - Somnolence [Recovered/Resolved]
